FAERS Safety Report 6080373-7 (Version None)
Quarter: 2009Q1

REPORT INFORMATION
  Report Type: 
  Country: None (occurrence: None)
  Receive Date: 20090217
  Receipt Date: 20090210
  Transmission Date: 20090719
  Serious: Yes (Hospitalization)
  Sender: FDA-Public Use
  Company Number: JP-MERCK-0901USA04429

PATIENT
  Age: 54 Year
  Sex: Male

DRUGS (5)
  1. SINGULAIR [Suspect]
     Indication: RHINITIS ALLERGIC
     Route: 048
     Dates: start: 20071215, end: 20080104
  2. SINGULAIR [Suspect]
     Route: 048
     Dates: start: 20081002, end: 20090112
  3. PREMINENT [Concomitant]
     Route: 048
     Dates: start: 20080901, end: 20090127
  4. CELESTAMINE TAB [Concomitant]
     Route: 048
     Dates: start: 20081002, end: 20090112
  5. SHIN'I-SEIHAI-TO [Concomitant]
     Route: 048
     Dates: start: 20081113, end: 20090112

REACTIONS (1)
  - LIVER DISORDER [None]
